FAERS Safety Report 5115129-2 (Version None)
Quarter: 2006Q3

REPORT INFORMATION
  Report Type: 
  Country: None (occurrence: None)
  Receive Date: 20060925
  Receipt Date: 20060925
  Transmission Date: 20061208
  Serious: Yes (Other)
  Sender: FDA-Public Use
  Company Number: None

PATIENT
  Age: 18 Year
  Sex: Female
  Weight: 54.4316 kg

DRUGS (2)
  1. GEODON [Suspect]
     Indication: OBSESSIVE-COMPULSIVE DISORDER
     Dosage: 60   27 DOSES   PO
     Route: 048
     Dates: start: 20060503, end: 20060531
  2. GEODON [Suspect]
     Indication: THINKING ABNORMAL
     Dosage: 60   27 DOSES   PO
     Route: 048
     Dates: start: 20060503, end: 20060531

REACTIONS (2)
  - DYSTONIA [None]
  - EYE MOVEMENT DISORDER [None]
